FAERS Safety Report 7574589-8 (Version None)
Quarter: 2011Q2

REPORT INFORMATION
  Report Type: 
  Country: None (occurrence: None)
  Receive Date: 20110627
  Receipt Date: 20091120
  Transmission Date: 20111010
  Serious: Yes (Other)
  Sender: FDA-Public Use
  Company Number: US-BAYER-200940940NA

PATIENT
  Age: 56 Year
  Sex: Male
  Weight: 105.5 kg

DRUGS (8)
  1. TRASYLOL [Suspect]
     Indication: CORONARY ARTERY BYPASS
     Dosage: UNK
     Dates: start: 20041004
  2. ACETYLSALICYLIC ACID SRT [Concomitant]
     Dosage: 325 MG, UNK
     Route: 048
  3. RANITIDINE [Concomitant]
     Dosage: 150 MG, BID
     Route: 048
  4. DILTIAZEM [Concomitant]
     Dosage: 120 MG, QD
     Route: 048
     Dates: start: 19960101, end: 20041004
  5. LOVASTATIN [Concomitant]
     Dosage: 20 MG, QD
     Route: 048
  6. METOPROLOL TARTRATE [Concomitant]
     Dosage: 50 MG, BID
     Route: 048
     Dates: start: 20041004
  7. HEPARIN [Concomitant]
     Dosage: UNK
     Route: 042
     Dates: start: 20041006, end: 20041007
  8. CEFAZOLIN [Concomitant]
     Dosage: 2 G, UNK
     Route: 042
     Dates: start: 20041006

REACTIONS (11)
  - ANHEDONIA [None]
  - RENAL INJURY [None]
  - MULTI-ORGAN FAILURE [None]
  - PAIN [None]
  - DISABILITY [None]
  - RENAL FAILURE [None]
  - INJURY [None]
  - ANXIETY [None]
  - UNEVALUABLE EVENT [None]
  - DEPRESSION [None]
  - FEAR [None]
